FAERS Safety Report 11737459 (Version 1)
Quarter: 2015Q4

REPORT INFORMATION
  Report Type: Spontaneous
  Country: US (occurrence: US)
  Receive Date: 20151110
  Receipt Date: 20151110
  Transmission Date: 20160304
  Serious: No
  Sender: FDA-Public Use
  Company Number: US-ELI_LILLY_AND_COMPANY-US201205004097

PATIENT
  Sex: Female

DRUGS (2)
  1. FORTEO [Suspect]
     Active Substance: TERIPARATIDE
     Indication: OSTEOPOROSIS
     Dosage: 20 UG, QD
     Route: 065
     Dates: start: 20120506
  2. FORTEO [Suspect]
     Active Substance: TERIPARATIDE
     Dosage: 20 UG, QD
     Route: 065

REACTIONS (16)
  - Back pain [Unknown]
  - Pain in extremity [Not Recovered/Not Resolved]
  - Abdominal pain upper [Unknown]
  - Intentional product misuse [Unknown]
  - Arthralgia [Not Recovered/Not Resolved]
  - Gait disturbance [Unknown]
  - Mental impairment [Unknown]
  - Pain [Recovering/Resolving]
  - Myalgia [Unknown]
  - Malaise [Recovering/Resolving]
  - Thinking abnormal [Unknown]
  - Chills [Recovering/Resolving]
  - Hand deformity [Unknown]
  - Confusional state [Unknown]
  - Adverse event [Unknown]
  - Nausea [Recovering/Resolving]
